FAERS Safety Report 9320459 (Version 2)
Quarter: 2013Q2

REPORT INFORMATION
  Report Type: Spontaneous
  Country: NZ (occurrence: NZ)
  Receive Date: 20130530
  Receipt Date: 20130530
  Transmission Date: 20140414
  Serious: Yes (Disabling)
  Sender: FDA-Public Use
  Company Number: NZ-PFIZER INC-2013116243

PATIENT
  Age: 77 Year
  Sex: Female

DRUGS (11)
  1. SALAZOPYRIN EN-TABS [Suspect]
     Dosage: 1000 MG, 3X/DAY
     Route: 048
     Dates: start: 20130412, end: 20130412
  2. BENDROFLUAZIDE [Concomitant]
     Dosage: 2.5 MG, 1X/DAY
  3. PARAFAST [Concomitant]
     Dosage: 1000 MG, 2X/DAY
  4. DILTIAZEM [Concomitant]
     Dosage: 240 MG, 1X/DAY
  5. SIMVA [Concomitant]
     Dosage: 40 MG, 1X/DAY
  6. OMEZOL [Concomitant]
     Dosage: 40 MG, 1X/DAY
  7. DURIDE [Concomitant]
     Dosage: 60 MG, 1X/DAY
  8. DILTIAZEM [Concomitant]
     Dosage: 120 MG, 1X/DAY
  9. ELTROXIN [Concomitant]
     Dosage: 50 UG, 1X/DAY
  10. LACTULOSE [Concomitant]
     Dosage: 15 ML, 2X/DAY
  11. NICOTINE [Concomitant]
     Dosage: 2 MG, AS NEEDED

REACTIONS (6)
  - Drug prescribing error [Recovered/Resolved]
  - Vomiting [Recovered/Resolved]
  - Malaise [Recovered/Resolved]
  - Decreased appetite [Recovered/Resolved]
  - Nausea [Recovered/Resolved]
  - Headache [Recovered/Resolved]
